FAERS Safety Report 14818866 (Version 2)
Quarter: 2018Q2

REPORT INFORMATION
  Report Type: Spontaneous
  Country: US (occurrence: US)
  Receive Date: 20180427
  Receipt Date: 20180507
  Transmission Date: 20180711
  Serious: Yes (Life-Threatening, Hospitalization, Other)
  Sender: FDA-Public Use
  Company Number: US-AUROBINDO-AUR-APL-2018-021078

PATIENT
  Age: 36 Year
  Sex: Male

DRUGS (1)
  1. LOPERAMIDE TABLET [Suspect]
     Active Substance: LOPERAMIDE
     Dosage: 30-200 TABLETS OF 2 MG
     Route: 048

REACTIONS (12)
  - Syncope [Unknown]
  - Clonus [Recovered/Resolved]
  - Ventricular extrasystoles [Unknown]
  - Cardiac arrest [Recovered/Resolved]
  - Toxicity to various agents [Recovered/Resolved]
  - Serotonin syndrome [Recovered/Resolved]
  - Dizziness [Unknown]
  - Drug abuse [Unknown]
  - Muscle rigidity [Recovered/Resolved]
  - Intentional overdose [Recovered/Resolved]
  - Hyperthermia [Recovered/Resolved]
  - Bundle branch block right [Unknown]
